FAERS Safety Report 6906243-7 (Version None)
Quarter: 2010Q3

REPORT INFORMATION
  Report Type: 
  Country: None (occurrence: None)
  Receive Date: 20100803
  Receipt Date: 20100803
  Transmission Date: 20110219
  Serious: No
  Sender: FDA-Public Use
  Company Number: None

PATIENT
  Age: 58 Year
  Sex: Male

DRUGS (1)
  1. FENTANYL TRANSDERM PATCH 1'S -25MCG ACTAVIS [Suspect]
     Indication: PAIN
     Dosage: APPLY 1 PATCH EVERY 72 HOURS
     Route: 062
     Dates: start: 20091001

REACTIONS (3)
  - INSOMNIA [None]
  - PAIN [None]
  - PRODUCT ADHESION ISSUE [None]
